FAERS Safety Report 20677977 (Version 2)
Quarter: 2024Q3

REPORT INFORMATION
  Report Type: Spontaneous
  Country: US (occurrence: US)
  Receive Date: 20220406
  Receipt Date: 20240802
  Transmission Date: 20241016
  Serious: Yes (Other)
  Sender: ACCORD
  Company Number: US-Accord-247163

PATIENT
  Age: 42 Year
  Sex: Female
  Weight: 68 kg

DRUGS (4)
  1. CARBOPLATIN [Suspect]
     Active Substance: CARBOPLATIN
     Indication: Breast cancer female
     Dosage: DOSE: 900 MG (6 TARGET AUC)?DILUENT: NORMAL SALINE
     Dates: start: 20201109, end: 20210225
  2. DOCETAXEL [Suspect]
     Active Substance: DOCETAXEL\DOCETAXEL ANHYDROUS
     Indication: Breast cancer female
     Dosage: DOSE: 135 MG (75 MG/M2)?DILUENT: NORMAL SALINE (0.9 %?SODIUM CHLORIDE)
     Dates: start: 20201109, end: 20210224
  3. HERCEPTIN [Suspect]
     Active Substance: TRASTUZUMAB
     Indication: Breast cancer female
     Dosage: 135 MG
     Dates: start: 20201109, end: 20210224
  4. PERJETA [Suspect]
     Active Substance: PERTUZUMAB
     Indication: Breast cancer female
     Dates: start: 20201109, end: 20210224

REACTIONS (6)
  - Agranulocytosis [Unknown]
  - Lacrimation increased [Not Recovered/Not Resolved]
  - Anaemia [Unknown]
  - Eye swelling [Not Recovered/Not Resolved]
  - Swelling of eyelid [Unknown]
  - Rosacea [Recovered/Resolved]

NARRATIVE: CASE EVENT DATE: 20200101
